FAERS Safety Report 4961838-5 (Version None)
Quarter: 2006Q2

REPORT INFORMATION
  Report Type: 
  Country: None (occurrence: None)
  Receive Date: 20060404
  Receipt Date: 20050708
  Transmission Date: 20061013
  Serious: Yes (Hospitalization)
  Sender: FDA-Public Use
  Company Number: PHHO2005US10820

PATIENT
  Age: 51 Year
  Sex: Male

DRUGS (15)
  1. NEORAL [Suspect]
     Indication: RENAL TRANSPLANT
     Dosage: 250 MG, BID
     Route: 048
     Dates: start: 20050614
  2. NEORAL [Suspect]
     Dosage: 200 MG, BID
     Route: 048
     Dates: start: 20050620
  3. NEORAL [Suspect]
     Dosage: 175 MG
     Route: 048
     Dates: start: 20050624, end: 20050624
  4. NEORAL [Suspect]
     Dosage: 150 MG, BID
     Route: 048
     Dates: start: 20050626, end: 20050627
  5. NEORAL [Suspect]
     Dosage: 100 MG, BID
     Route: 048
     Dates: start: 20050628
  6. MYCOPHENOLATE MOFETIL [Concomitant]
     Indication: RENAL TRANSPLANT
     Dosage: 1000 MG, BID
     Route: 048
     Dates: start: 20050614
  7. PREDNISONE [Concomitant]
     Indication: RENAL TRANSPLANT
     Dosage: 27.5 MG / DAY
     Route: 048
     Dates: start: 20050620
  8. ESIDRIX [Suspect]
     Dosage: 50 MG / DAY
     Route: 048
     Dates: start: 20050623, end: 20050627
  9. NORVASC [Concomitant]
     Dates: start: 20050616
  10. METOPROLOL [Concomitant]
     Dates: start: 20050619
  11. PROTONIX [Concomitant]
     Dates: start: 20050615
  12. SEPTRA [Concomitant]
     Dates: start: 20050615
  13. M.V.I. [Concomitant]
     Dates: start: 20050615
  14. ACETAMINOPHEN W/ CODEINE [Concomitant]
     Dates: start: 20050618
  15. VALGANCICLOVIR [Concomitant]
     Dates: start: 20050615

REACTIONS (4)
  - BLOOD CREATININE INCREASED [None]
  - DEHYDRATION [None]
  - NEPHROPATHY TOXIC [None]
  - RENAL IMPAIRMENT [None]
